FAERS Safety Report 22522469 (Version 2)
Quarter: 2023Q2

REPORT INFORMATION
  Report Type: Spontaneous
  Country: US (occurrence: US)
  Receive Date: 20230605
  Receipt Date: 20230605
  Transmission Date: 20230722
  Serious: No
  Sender: FDA-Public Use
  Company Number: US-002147023-NVSC2023US126195

PATIENT
  Sex: Female

DRUGS (3)
  1. VOTRIENT [Suspect]
     Active Substance: PAZOPANIB HYDROCHLORIDE
     Indication: Soft tissue neoplasm
     Dosage: 2 DOSAGE FORM, QD (2 TABLETS FOR 7 DAYS)
     Route: 048
     Dates: start: 202305
  2. VOTRIENT [Suspect]
     Active Substance: PAZOPANIB HYDROCHLORIDE
     Dosage: 3 DOSAGE FORM, QD (3 TABLETS FOR 7 DAYS)
     Route: 048
     Dates: start: 202305
  3. VOTRIENT [Suspect]
     Active Substance: PAZOPANIB HYDROCHLORIDE
     Dosage: 4 DOSAGE FORM, QD (4 TABLETS FOR 7 DAYS)
     Route: 048

REACTIONS (4)
  - Fatigue [Unknown]
  - Nausea [Unknown]
  - Decreased appetite [Unknown]
  - Vomiting [Unknown]
